FAERS Safety Report 20157207 (Version 1)
Quarter: 2021Q4

REPORT INFORMATION
  Report Type: Spontaneous
  Country: US (occurrence: None)
  Receive Date: 20211207
  Receipt Date: 20211207
  Transmission Date: 20220303
  Serious: No
  Sender: FDA-Public Use
  Company Number: None

PATIENT
  Age: 61 Year
  Sex: Male

DRUGS (2)
  1. SILDENAFIL [Suspect]
     Active Substance: SILDENAFIL
     Dosage: FREQUENCY : AS NEEDED;?
     Route: 048
     Dates: start: 20211019, end: 20211115
  2. slidenatil [Concomitant]

REACTIONS (3)
  - Physical product label issue [None]
  - Product communication issue [None]
  - Product dispensing issue [None]

NARRATIVE: CASE EVENT DATE: 20211207
